FAERS Safety Report 10058698 (Version 2)
Quarter: 2014Q2

REPORT INFORMATION
  Report Type: Spontaneous
  Country: GB (occurrence: None)
  Receive Date: 20140402
  Receipt Date: 20140507
  Transmission Date: 20141212
  Serious: Yes (Hospitalization, Other)
  Sender: FDA-Public Use
  Company Number: FK201401048

PATIENT
  Age: 65 Year
  Sex: Male

DRUGS (9)
  1. GEMCITABINE (MANUFACTURER UNKNOWN) (GEMCITABINE) (GEMCITABINE) [Suspect]
     Indication: BLADDER CANCER
     Dosage: 2 IN 21 D
     Route: 042
     Dates: start: 20111222, end: 20120417
  2. CISPLATIN [Suspect]
     Indication: BLADDER CANCER
     Route: 042
     Dates: start: 201112, end: 20120417
  3. DEXAMETHASONE (DEXAMETHASONE) [Concomitant]
  4. MACROGOL (MACROGOL) [Concomitant]
  5. METOCLOPRAMIDE (METOCLOPRAMIDE) [Concomitant]
  6. ONDANSETRON (ONDANSETRON) [Concomitant]
  7. ORAMORPH (MORPHINE SULFATE PENTAHYDRATE) [Concomitant]
  8. PREDNISOLONE (PREDNISOLONE) [Concomitant]
  9. UNIPHYLLIN (THEOPHYLLINE) [Concomitant]

REACTIONS (7)
  - Chronic obstructive pulmonary disease [None]
  - Dysgeusia [None]
  - Back pain [None]
  - Constipation [None]
  - Lethargy [None]
  - Nausea [None]
  - Pyrexia [None]
